FAERS Safety Report 12746685 (Version 10)
Quarter: 2017Q1

REPORT INFORMATION
  Report Type: Report from Study
  Country: CA (occurrence: CA)
  Receive Date: 20160915
  Receipt Date: 20170119
  Transmission Date: 20170428
  Serious: Yes (Other)
  Sender: FDA-Public Use
  Company Number: CA-JNJFOC-20160822978

PATIENT
  Age: 65 Year
  Sex: Female

DRUGS (2)
  1. IMBRUVICA [Suspect]
     Active Substance: IBRUTINIB
     Indication: CHRONIC LYMPHOCYTIC LEUKAEMIA
     Route: 048
     Dates: start: 20160825, end: 20161206
  2. IMBRUVICA [Suspect]
     Active Substance: IBRUTINIB
     Indication: CHRONIC LYMPHOCYTIC LEUKAEMIA
     Route: 048
     Dates: start: 20161208

REACTIONS (24)
  - Local swelling [Not Recovered/Not Resolved]
  - Dizziness [Recovered/Resolved]
  - Increased tendency to bruise [Not Recovered/Not Resolved]
  - Frequent bowel movements [Not Recovered/Not Resolved]
  - Weight increased [Unknown]
  - Blood urine present [Recovered/Resolved]
  - Headache [Recovered/Resolved]
  - Fatigue [Not Recovered/Not Resolved]
  - Lethargy [Recovered/Resolved]
  - Sensory disturbance [Recovered/Resolved]
  - Stomatitis [Not Recovered/Not Resolved]
  - Muscle spasms [Recovering/Resolving]
  - Decreased appetite [Not Recovered/Not Resolved]
  - Plicated tongue [Recovered/Resolved]
  - Oral mucosal blistering [Not Recovered/Not Resolved]
  - Constipation [Recovered/Resolved]
  - Asthenia [Recovered/Resolved]
  - White blood cell count increased [Unknown]
  - Arthritis [Unknown]
  - Feeling cold [Recovered/Resolved]
  - Oral pain [Recovered/Resolved]
  - Arthralgia [Not Recovered/Not Resolved]
  - Oral herpes [Recovered/Resolved]
  - Contusion [Recovered/Resolved]

NARRATIVE: CASE EVENT DATE: 201608
